FAERS Safety Report 10868390 (Version 1)
Quarter: 2015Q1

REPORT INFORMATION
  Report Type: Spontaneous
  Country: None (occurrence: None)
  Receive Date: 20150220
  Receipt Date: 20150220
  Transmission Date: 20150721
  Serious: Yes (Hospitalization)
  Sender: FDA-Public Use
  Company Number: None

PATIENT
  Age: 76 Year
  Sex: Male
  Weight: 95.1 kg

DRUGS (2)
  1. PREDNISONE. [Suspect]
     Active Substance: PREDNISONE
     Dates: end: 20150116
  2. ABIRATERONE ACETATE [Suspect]
     Active Substance: ABIRATERONE ACETATE
     Dates: start: 20140519, end: 20150115

REACTIONS (13)
  - Metastases to retroperitoneum [None]
  - Condition aggravated [None]
  - Lymphadenopathy mediastinal [None]
  - Adrenal disorder [None]
  - Metastases to bone [None]
  - Lymphadenopathy [None]
  - Malignant neoplasm progression [None]
  - Fall [None]
  - Nodule [None]
  - Hydronephrosis [None]
  - Pathological fracture [None]
  - Metastasis [None]
  - Femur fracture [None]

NARRATIVE: CASE EVENT DATE: 20150209
